FAERS Safety Report 5039504-X (Version None)
Quarter: 2006Q2

REPORT INFORMATION
  Report Type: 
  Country: None (occurrence: None)
  Receive Date: 20060626
  Receipt Date: 20060617
  Transmission Date: 20061013
  Serious: Yes (Hospitalization)
  Sender: FDA-Public Use
  Company Number: 163-20785-06060651

PATIENT
  Age: 64 Year
  Sex: Male

DRUGS (1)
  1. THALOMID [Suspect]
     Indication: MULTIPLE MYELOMA
     Dosage: 150 MG, DAILY, ORAL
     Route: 048
     Dates: start: 20051209, end: 20060101

REACTIONS (2)
  - BENIGN PROSTATIC HYPERPLASIA [None]
  - OBSTRUCTIVE UROPATHY [None]
